FAERS Safety Report 10562507 (Version 1)
Quarter: 2014Q4

REPORT INFORMATION
  Report Type: Spontaneous
  Country: JP (occurrence: JP)
  Receive Date: 20141104
  Receipt Date: 20141104
  Transmission Date: 20150529
  Serious: Yes (Other)
  Sender: FDA-Public Use
  Company Number: JP-NAPPMUNDI-GBR-2014-0023434

PATIENT
  Age: 85 Year
  Sex: Female

DRUGS (12)
  1. NORSPAN [Suspect]
     Active Substance: BUPRENORPHINE
     Indication: BACK PAIN
     Dosage: 5 MCG, Q1H
     Route: 062
     Dates: start: 20140820, end: 20141022
  2. LOSARTAN [Concomitant]
     Active Substance: LOSARTAN
     Route: 065
  3. FUROSEMIDE. [Concomitant]
     Active Substance: FUROSEMIDE
     Route: 065
  4. DEPAS [Concomitant]
     Active Substance: ETIZOLAM
     Route: 065
  5. AMLODIPINE [Concomitant]
     Active Substance: AMLODIPINE BESYLATE
     Route: 065
  6. WARFARIN POTASSIUM [Concomitant]
     Active Substance: WARFARIN POTASSIUM
     Route: 065
  7. ALDACTONE [Concomitant]
     Active Substance: SPIRONOLACTONE
     Route: 065
  8. ARTIST [Concomitant]
     Active Substance: CARVEDILOL
     Route: 065
  9. VONAFEC [Concomitant]
     Active Substance: DICLOFENAC SODIUM
     Route: 065
  10. LENDORMIN [Concomitant]
     Active Substance: BROTIZOLAM
     Route: 065
  11. METOLATE [Concomitant]
     Active Substance: METHOTREXATE
     Route: 065
  12. OMEPRAZOLE. [Concomitant]
     Active Substance: OMEPRAZOLE

REACTIONS (2)
  - Leukopenia [Not Recovered/Not Resolved]
  - Thrombocytopenia [Not Recovered/Not Resolved]
